FAERS Safety Report 5236554-5 (Version None)
Quarter: 2007Q1

REPORT INFORMATION
  Report Type: 
  Country: None (occurrence: None)
  Receive Date: 20070208
  Receipt Date: 20070130
  Transmission Date: 20070707
  Serious: Yes (Other)
  Sender: FDA-Public Use
  Company Number: 163-20785-06110449

PATIENT
  Age: 58 Year
  Sex: Male

DRUGS (13)
  1. THALOMID [Suspect]
     Indication: MULTIPLE MYELOMA
     Dosage: 200 MG, 1 IN 1 D, ORAL; 100-200 MG, ORAL
     Route: 048
     Dates: start: 20020101, end: 20050401
  2. THALOMID [Suspect]
     Indication: MULTIPLE MYELOMA
     Dosage: 200 MG, 1 IN 1 D, ORAL; 100-200 MG, ORAL
     Route: 048
     Dates: start: 20050901, end: 20061101
  3. PAMIDRONATE DISODIUM [Suspect]
     Indication: DRUG USE FOR UNKNOWN INDICATION
  4. NORVASC [Concomitant]
  5. COLCHICINE (COLCHICINE) [Concomitant]
  6. ACTOS [Concomitant]
  7. LIPITOR [Concomitant]
  8. ATENOLOL [Concomitant]
  9. AMBIEN [Concomitant]
  10. ZETIA [Concomitant]
  11. FLAGYL [Concomitant]
  12. QUESTRAN [Concomitant]
  13. CULTURELLE (CULTURELLE) (TABLETS) [Concomitant]

REACTIONS (6)
  - CONDITION AGGRAVATED [None]
  - DRUG EFFECT DECREASED [None]
  - HAEMOGLOBIN DECREASED [None]
  - MONOCLONAL IMMUNOGLOBULIN PRESENT [None]
  - NEUROPATHY [None]
  - OSTEONECROSIS [None]
